FAERS Safety Report 4627916-5 (Version None)
Quarter: 2005Q2

REPORT INFORMATION
  Report Type: 
  Country: None (occurrence: None)
  Receive Date: 20050401
  Receipt Date: 20050317
  Transmission Date: 20051028
  Serious: Yes (Other)
  Sender: FDA-Public Use
  Company Number: 8009557

PATIENT

DRUGS (2)
  1. KEPPRA [Suspect]
     Indication: CONVULSION
  2. POLYPHARMACY COCKTAIL [Concomitant]

REACTIONS (1)
  - HEPATITIS [None]
